FAERS Safety Report 5119171-7 (Version None)
Quarter: 2006Q3

REPORT INFORMATION
  Report Type: 
  Country: None (occurrence: None)
  Receive Date: 20060929
  Receipt Date: 20060929
  Transmission Date: 20061208
  Serious: No
  Sender: FDA-Public Use
  Company Number: None

PATIENT
  Age: 40 Year
  Sex: Male
  Weight: 137.8935 kg

DRUGS (1)
  1. FLUCONAZOLE [Suspect]
     Indication: TINEA PEDIS
     Dosage: A ONE TIME ONLY  TABLET    BUCCAL
     Route: 002

REACTIONS (4)
  - CROHN'S DISEASE [None]
  - DISORIENTATION [None]
  - INFLUENZA [None]
  - URTICARIA [None]
